FAERS Safety Report 8037424-X (Version None)
Quarter: 2011Q4

REPORT INFORMATION
  Report Type: 
  Country: None (occurrence: None)
  Receive Date: 20111202
  Receipt Date: 20091002
  Transmission Date: 20120403
  Serious: Yes (Hospitalization)
  Sender: FDA-Public Use
  Company Number: 2009SP028654

PATIENT

DRUGS (1)
  1. NUVARING [Suspect]
     Indication: CONTRACEPTION
     Dates: start: 20070401, end: 20070901

REACTIONS (6)
  - PULMONARY EMBOLISM [None]
  - BLOOD GLUCOSE INCREASED [None]
  - PAIN [None]
  - ANXIETY [None]
  - STRESS [None]
  - HEADACHE [None]
